FAERS Safety Report 5931430-4 (Version None)
Quarter: 2008Q4

REPORT INFORMATION
  Report Type: 
  Country: None (occurrence: None)
  Receive Date: 20081024
  Receipt Date: 20081024
  Transmission Date: 20090506
  Serious: Yes (Other)
  Sender: FDA-Public Use
  Company Number: None

PATIENT
  Age: 44 Year
  Sex: Female
  Weight: 122.4712 kg

DRUGS (1)
  1. BENAZEPRIL HCL 20 MG [Suspect]
     Indication: HYPERTENSION
     Dosage: 1 TAB PO ONCE DAILY
     Route: 048
     Dates: start: 20050101, end: 20081022

REACTIONS (1)
  - ANGIOEDEMA [None]
